FAERS Safety Report 6294839-8 (Version None)
Quarter: 2009Q3

REPORT INFORMATION
  Report Type: 
  Country: None (occurrence: None)
  Receive Date: 20090803
  Receipt Date: 20090723
  Transmission Date: 20100115
  Serious: Yes (Other)
  Sender: FDA-Public Use
  Company Number: PHHY2009BR24800

PATIENT
  Age: 64 Year
  Sex: Female
  Weight: 86 kg

DRUGS (2)
  1. DIOVAN HCT [Suspect]
     Indication: HYPERTENSION
     Dosage: 160/12.5 MG, UNK
     Route: 048
     Dates: start: 20090201
  2. NAPRIX [Concomitant]
     Dosage: 1 DF

REACTIONS (4)
  - BLOOD PRESSURE INADEQUATELY CONTROLLED [None]
  - BLOOD PRESSURE INCREASED [None]
  - DRUG INEFFECTIVE [None]
  - EXPIRED DRUG ADMINISTERED [None]
